FAERS Safety Report 20372025 (Version 2)
Quarter: 2022Q1

REPORT INFORMATION
  Report Type: Report from Study
  Country: KR (occurrence: None)
  Receive Date: 20220124
  Receipt Date: 20220323
  Transmission Date: 20220423
  Serious: Yes (Death, Hospitalization)
  Sender: FDA-Public Use
  Company Number: KR-Eisai Medical Research-EC-2022-107338

PATIENT
  Age: 72 Year
  Sex: Male
  Weight: 57 kg

DRUGS (3)
  1. LENVIMA [Suspect]
     Active Substance: LENVATINIB
     Indication: Hepatocellular carcinoma
     Route: 048
     Dates: start: 20210601, end: 20210822
  2. BARACLUDE [Concomitant]
     Active Substance: ENTECAVIR
     Indication: Chronic hepatitis B
     Route: 048
     Dates: start: 20200909
  3. URSODIOL [Concomitant]
     Active Substance: URSODIOL
     Indication: Chronic hepatitis B
     Route: 048
     Dates: start: 20200910

REACTIONS (3)
  - Ischaemic hepatitis [Fatal]
  - Acute hepatic failure [Fatal]
  - Subacute hepatic failure [Fatal]

NARRATIVE: CASE EVENT DATE: 20210823
